FAERS Safety Report 14585082 (Version 2)
Quarter: 2018Q1

REPORT INFORMATION
  Report Type: Report from Study
  Country: None (occurrence: BR)
  Receive Date: 20180301
  Receipt Date: 20180307
  Transmission Date: 20180509
  Serious: Yes (Other)
  Sender: FDA-Public Use
  Company Number: BR-ABBVIE-18K-020-2268764-00

PATIENT
  Age: 30 Year
  Sex: Female
  Weight: 62 kg

DRUGS (10)
  1. HUMIRA [Suspect]
     Active Substance: ADALIMUMAB
     Dosage: WEEK 2
     Route: 058
     Dates: start: 201203, end: 201203
  2. AZATHIOPRINE. [Suspect]
     Active Substance: AZATHIOPRINE
     Indication: PRODUCT USED FOR UNKNOWN INDICATION
     Route: 065
  3. HUMIRA [Suspect]
     Active Substance: ADALIMUMAB
     Route: 058
  4. PROFENID [Suspect]
     Active Substance: KETOPROFEN
     Indication: PRODUCT USED FOR UNKNOWN INDICATION
     Route: 065
  5. FERINJECT [Suspect]
     Active Substance: FERRIC CARBOXYMALTOSE
     Indication: HAEMOGLOBIN DECREASED
     Route: 065
  6. DIPYRONE [Suspect]
     Active Substance: DIPYRONE
     Indication: PRODUCT USED FOR UNKNOWN INDICATION
     Route: 065
  7. HUMIRA [Suspect]
     Active Substance: ADALIMUMAB
     Dosage: DOSE CHANGED
     Route: 058
  8. HUMIRA [Suspect]
     Active Substance: ADALIMUMAB
     Indication: CROHN^S DISEASE
     Dosage: WEEK 0
     Route: 058
     Dates: start: 20120301, end: 20120301
  9. FERINJECT [Suspect]
     Active Substance: FERRIC CARBOXYMALTOSE
     Indication: ANAEMIA
  10. HUMIRA [Suspect]
     Active Substance: ADALIMUMAB
     Dosage: DOSE DECREASED
     Route: 058
     Dates: start: 20171017

REACTIONS (27)
  - Vulval abscess [Recovering/Resolving]
  - Lymphadenitis [Recovered/Resolved]
  - Anaemia [Not Recovered/Not Resolved]
  - Infection [Recovered/Resolved]
  - Serum ferritin decreased [Not Recovered/Not Resolved]
  - Fistula [Unknown]
  - Immunodeficiency [Recovered/Resolved]
  - Rubber sensitivity [Recovering/Resolving]
  - Iron metabolism disorder [Unknown]
  - Gastrointestinal inflammation [Recovered/Resolved]
  - Alopecia [Unknown]
  - Rubber sensitivity [Unknown]
  - Injection site mass [Recovering/Resolving]
  - Injection site oedema [Recovering/Resolving]
  - Injection site erythema [Recovering/Resolving]
  - Enteritis [Unknown]
  - Localised oedema [Recovered/Resolved]
  - Injection site pruritus [Recovering/Resolving]
  - Laryngeal oedema [Recovered/Resolved]
  - Decreased immune responsiveness [Unknown]
  - Hypersensitivity [Recovered/Resolved]
  - Faecal calprotectin increased [Unknown]
  - Oedema peripheral [Recovered/Resolved]
  - Infection [Unknown]
  - Erythema [Unknown]
  - Rash macular [Recovered/Resolved]
  - Pruritus generalised [Recovered/Resolved]

NARRATIVE: CASE EVENT DATE: 2012
